FAERS Safety Report 24893814 (Version 2)
Quarter: 2025Q1

REPORT INFORMATION
  Report Type: Spontaneous
  Country: JP (occurrence: JP)
  Receive Date: 20250128
  Receipt Date: 20250226
  Transmission Date: 20250409
  Serious: Yes (Other)
  Sender: BAXTER
  Company Number: JP-shionogi-202500000875

PATIENT
  Age: 67 Year
  Sex: Male

DRUGS (6)
  1. CYCLOPHOSPHAMIDE [Suspect]
     Active Substance: CYCLOPHOSPHAMIDE
     Indication: Follicular lymphoma
     Route: 065
  2. DOXORUBICIN [Suspect]
     Active Substance: DOXORUBICIN
     Indication: Follicular lymphoma
     Route: 065
  3. PREDONINE [Suspect]
     Active Substance: PREDNISOLONE
     Indication: Follicular lymphoma
     Route: 065
  4. RITUXIMAB [Concomitant]
     Active Substance: RITUXIMAB
     Indication: Follicular lymphoma
     Route: 065
  5. PIRARUBICIN [Concomitant]
     Active Substance: PIRARUBICIN
     Indication: Follicular lymphoma
     Route: 065
  6. VINCRISTINE [Concomitant]
     Active Substance: VINCRISTINE
     Indication: Follicular lymphoma
     Route: 065

REACTIONS (4)
  - Cardiac dysfunction [Recovering/Resolving]
  - Palpitations [Unknown]
  - Dyspnoea exertional [Unknown]
  - Oedema peripheral [Unknown]
